FAERS Safety Report 19770820 (Version 2)
Quarter: 2021Q3

REPORT INFORMATION
  Report Type: Spontaneous
  Country: CN (occurrence: CN)
  Receive Date: 20210831
  Receipt Date: 20210831
  Transmission Date: 20211014
  Serious: Yes (Life-Threatening, Other)
  Sender: FDA-Public Use
  Company Number: CN-BAYER-2021-201674

PATIENT
  Age: 76 Year
  Sex: Female
  Weight: 52 kg

DRUGS (6)
  1. BAYASPIRIN 100 MG [Suspect]
     Active Substance: ASPIRIN
     Indication: CEREBROVASCULAR ACCIDENT PROPHYLAXIS
     Dosage: 100 MG, QD
     Route: 048
     Dates: start: 20210702, end: 20210819
  2. GLUCOBAY [Suspect]
     Active Substance: ACARBOSE
     Indication: TYPE 2 DIABETES MELLITUS
     Dosage: 50 MG, TID
     Route: 048
     Dates: start: 202107
  3. GLICLAZIDE [Concomitant]
     Active Substance: GLICLAZIDE
     Dosage: 60 MG, QD
  4. METFORMIN [Concomitant]
     Active Substance: METFORMIN HYDROCHLORIDE
     Dosage: 0.15 G, TID
  5. PLAVIX [Suspect]
     Active Substance: CLOPIDOGREL BISULFATE
     Indication: CEREBROVASCULAR ACCIDENT PROPHYLAXIS
     Dosage: 75 MG, QD
     Route: 048
     Dates: start: 20210705, end: 20210819
  6. TEPRENONE [Concomitant]
     Active Substance: TEPRENONE
     Dosage: 50 MG, TID
     Dates: start: 202107

REACTIONS (9)
  - Cerebral atrophy [None]
  - Labelled drug-drug interaction medication error [None]
  - Melaena [Recovering/Resolving]
  - Muscular weakness [Recovering/Resolving]
  - Demyelination [None]
  - Lacunar infarction [None]
  - Blood loss anaemia [Recovering/Resolving]
  - Upper gastrointestinal haemorrhage [Recovering/Resolving]
  - Haematemesis [Recovering/Resolving]

NARRATIVE: CASE EVENT DATE: 20210822
